FAERS Safety Report 7825030-9 (Version None)
Quarter: 2011Q4

REPORT INFORMATION
  Report Type: 
  Country: None (occurrence: None)
  Receive Date: 20111019
  Receipt Date: 20110503
  Transmission Date: 20120403
  Serious: No
  Sender: FDA-Public Use
  Company Number: US-BRISTOL-MYERS SQUIBB COMPANY-15649841

PATIENT
  Sex: Male

DRUGS (1)
  1. AVALIDE [Suspect]
     Dosage: 1DF= 300/12.5 UNIT NOT GIVEN. FEW YEARS. PILLS.

REACTIONS (2)
  - DIZZINESS [None]
  - PRODUCT COUNTERFEIT [None]
